FAERS Safety Report 4401231-7 (Version None)
Quarter: 2004Q3

REPORT INFORMATION
  Report Type: 
  Country: None (occurrence: None)
  Receive Date: 20040907
  Receipt Date: 20040112
  Transmission Date: 20050211
  Serious: No
  Sender: FDA-Public Use
  Company Number: US-BRISTOL-MYERS SQUIBB COMPANY-12475620

PATIENT
  Sex: Male

DRUGS (5)
  1. COUMADIN [Suspect]
     Indication: HEART VALVE REPLACEMENT
     Dosage: STARTED RX ABOUT 4 YEARS AGO.
     Route: 048
  2. LIPITOR [Concomitant]
  3. ACCUPRIL [Concomitant]
  4. COLCHICINE [Concomitant]
  5. PLAVIX [Concomitant]

REACTIONS (3)
  - CONTUSION [None]
  - INTERNATIONAL NORMALISED RATIO ABNORMAL [None]
  - PROTHROMBIN TIME ABNORMAL [None]
